FAERS Safety Report 6710024-7 (Version None)
Quarter: 2010Q2

REPORT INFORMATION
  Report Type: 
  Country: None (occurrence: None)
  Receive Date: 20100503
  Receipt Date: 20100503
  Transmission Date: 20101027
  Serious: Yes (Life-Threatening, Hospitalization, Disabling)
  Sender: FDA-Public Use
  Company Number: None

PATIENT
  Age: 5 Year
  Sex: Male
  Weight: 21.3191 kg

DRUGS (2)
  1. CHILDREN'S TYLENOL SUSPENSION [Suspect]
     Indication: PNEUMONIA
     Dosage: 1 AND A HALF TEASPOONS EVERY FOUR HOURS PO
     Route: 048
     Dates: start: 20100427, end: 20100430
  2. CHILDREN'S MOTRIN [Suspect]
     Indication: PNEUMONIA
     Dosage: 1 AND A HALF EVERY 6 HOURS PO
     Route: 048
     Dates: start: 20100427, end: 20100430

REACTIONS (2)
  - DRUG INEFFECTIVE [None]
  - SKIN DISCOLOURATION [None]
